FAERS Safety Report 6678761-0 (Version None)
Quarter: 2010Q2

REPORT INFORMATION
  Report Type: 
  Country: None (occurrence: None)
  Receive Date: 20100413
  Receipt Date: 20100406
  Transmission Date: 20101027
  Serious: Yes (Hospitalization)
  Sender: FDA-Public Use
  Company Number: DE-ASTRAZENECA-2010SE07273

PATIENT
  Age: 51 Year
  Sex: Female

DRUGS (8)
  1. SEROQUEL [Suspect]
     Route: 048
     Dates: start: 20090505, end: 20091105
  2. ERGENYL [Suspect]
     Route: 048
     Dates: start: 20060131, end: 20091110
  3. ERGENYL [Suspect]
     Route: 048
     Dates: start: 20091122, end: 20091127
  4. ERGENYL [Suspect]
     Route: 048
     Dates: start: 20091204
  5. SULPIRID [Suspect]
     Route: 048
     Dates: start: 20080520, end: 20091110
  6. METOPROLOL SUCCINATE [Concomitant]
     Route: 048
  7. NEXIUM [Concomitant]
     Route: 048
     Dates: end: 20091127
  8. LEVOTHYROXINE SODIUM [Concomitant]
     Route: 048

REACTIONS (1)
  - THROMBOCYTOPENIA [None]
